FAERS Safety Report 20661745 (Version 1)
Quarter: 2022Q2

REPORT INFORMATION
  Report Type: Report from Study
  Country: US (occurrence: US)
  Receive Date: 20220401
  Receipt Date: 20220401
  Transmission Date: 20220721
  Serious: Yes (Other)
  Sender: FDA-Public Use
  Company Number: US-BIOGEN-2022BI01110006

PATIENT
  Sex: Female
  Weight: 89.2 kg

DRUGS (27)
  1. TECFIDERA [Suspect]
     Active Substance: DIMETHYL FUMARATE
     Indication: Multiple sclerosis
     Dosage: STARTING DOSE
     Route: 048
     Dates: start: 20160315
  2. TECFIDERA [Suspect]
     Active Substance: DIMETHYL FUMARATE
     Dosage: MAINTENANCE DOSE
     Route: 048
  3. TYLENOL [Concomitant]
     Active Substance: ACETAMINOPHEN
     Indication: Product used for unknown indication
     Dosage: TAKE 650 MG BY MOUTH THREE TIMES DAILY
     Route: 048
  4. TYLENOL [Concomitant]
     Active Substance: ACETAMINOPHEN
     Dosage: TAKE 650 MG BY MOUTH EVERY 4 HOURS AS NEEDED
     Route: 048
  5. FOSAMAX [Concomitant]
     Active Substance: ALENDRONATE SODIUM
     Indication: Product used for unknown indication
     Dosage: TAKE 70 MG BY MOUTH EVERY 7 DAYS. TAKE WITH WATER ON EMPTY STOMACH BEFORE BREAKFAST. SIT UPRIGHT ...
     Route: 048
  6. NORVASC [Concomitant]
     Active Substance: AMLODIPINE BESYLATE
     Indication: Product used for unknown indication
     Dosage: TAKE 2.5 MG BY MOUTH DAILY
     Route: 048
  7. ELIQUIS [Concomitant]
     Active Substance: APIXABAN
     Indication: Product used for unknown indication
     Dosage: TAKE 5 MG BY MOUTH TWO TIMES DAILY
     Route: 048
  8. CALCIUM CARBONATE\CHOLECALCIFEROL [Concomitant]
     Active Substance: CALCIUM CARBONATE\CHOLECALCIFEROL
     Indication: Product used for unknown indication
     Dosage: TAKE BY MOUTH
     Route: 048
  9. CHOLECALCIFEROL, VITAMIN D3 [Concomitant]
     Indication: Product used for unknown indication
     Dosage: TAKE 50,000 UNITS BY MOUTH DAILY. EVERY 15 DAYS
     Route: 048
  10. CYANOCOBALAMIN (VITAMIN B12) [Concomitant]
     Indication: Product used for unknown indication
     Dosage: TAKE 1000 MCG BY MOUTH EVERY 4 DAYS. MONDAY THROUGH THURSDAY
     Route: 048
  11. VOLTAREN [Concomitant]
     Active Substance: DICLOFENAC SODIUM
     Indication: Product used for unknown indication
     Dosage: 1%, APPLY TOPICALLY 3X DAILY WITH FOOD
     Route: 061
  12. NEURONTIN [Concomitant]
     Active Substance: GABAPENTIN
     Indication: Product used for unknown indication
     Dosage: TAKE 400 MG BY MOUTH THREE TIMES DAILY
     Route: 048
  13. HYDRODIURIL [Concomitant]
     Active Substance: HYDROCHLOROTHIAZIDE
     Indication: Product used for unknown indication
     Dosage: TALE 50 MG BY MOUTH DAILY
     Route: 048
  14. NORCO [Concomitant]
     Active Substance: ACETAMINOPHEN\HYDROCODONE BITARTRATE
     Indication: Product used for unknown indication
     Dosage: 5-325 MG PER TABLET, TAKE 1 TAB BY MOUTH TWO TIMES DAILY AS NEEDED
     Route: 048
  15. SYNTHROID [Concomitant]
     Active Substance: LEVOTHYROXINE SODIUM
     Indication: Product used for unknown indication
     Dosage: TAKE 112 MCG BY MOUTH 30 MINUTES BEFORE BREAKFAST
     Route: 048
  16. SYNTHROID [Concomitant]
     Active Substance: LEVOTHYROXINE SODIUM
     Dosage: TAKE 1 TABLET (100 MCG TOTAL) BY MOUTH 30 MINUTES BEFORE BREAKFAST
     Route: 048
  17. LEVOTHROID [Concomitant]
     Active Substance: LEVOTHYROXINE SODIUM
     Indication: Product used for unknown indication
     Dosage: TAKE 1 TABLET (100 MCG TOTAL) BY MOUTH 30 MINUTES BEFORE BREAKFAST
     Route: 048
  18. MAGNESIUM HYDROXIDE (MILK OF MAGNESIA) [Concomitant]
     Indication: Product used for unknown indication
     Dosage: 400 MG/5ML, TAKE 15 ML BY MOUTH EVER THIRD DAY AS NEEDED
     Route: 048
  19. MAGNESIUM OXIDE [Concomitant]
     Active Substance: MAGNESIUM OXIDE
     Indication: Product used for unknown indication
     Dosage: 400 MG (241.3 MG MAGNESIUM TABLET), TAKE 400 MG BY MOUTH TWO TIMES DAILY
     Route: 048
  20. BENGAY COLD THERAPY [Concomitant]
     Active Substance: MENTHOL
     Indication: Product used for unknown indication
     Dosage: 5% GEL, APPLY TOPICALLY AS NEEDED
     Route: 061
  21. SINGULAIR [Concomitant]
     Active Substance: MONTELUKAST SODIUM
     Indication: Product used for unknown indication
     Dosage: TAKE 10 MG BY MOUTH DAILY
     Route: 048
  22. PRILOSEC [Concomitant]
     Active Substance: OMEPRAZOLE MAGNESIUM
     Indication: Product used for unknown indication
     Dosage: TAKE 20 MG BY MOUTH EVERY MORNING. 2 CAPSULES 40 MG
     Route: 048
  23. KLOR-CON [Concomitant]
     Active Substance: POTASSIUM CHLORIDE
     Indication: Product used for unknown indication
     Dosage: TAKE 20 MEQ BY MOUTH THREE TIMES DAILY
     Route: 048
  24. SIMETHICONE (DIMETHICONE) [Concomitant]
     Active Substance: DIMETHICONE
     Indication: Flatulence
     Dosage: TAKE 80 MG BY MOUTH EVERY 6 HOURS AS NEEDED
     Route: 048
  25. ZOCOR [Concomitant]
     Active Substance: SIMVASTATIN
     Indication: Product used for unknown indication
     Dosage: TAKE 20 MG BY MOUTH NIGHTLY
     Route: 048
  26. ULTRAM [Concomitant]
     Active Substance: TRAMADOL HYDROCHLORIDE
     Indication: Pain
     Dosage: TAKE 50 MG BY MOUTH EVERY 8 HOURS AS NEEDED
     Route: 048
  27. ASPERCREME (TROLAMINE SALICYLATE) [Concomitant]
     Indication: Product used for unknown indication
     Dosage: 10% CREAM, APPLY 1 APPLICATION TOPICALLY DAILY ON FEET
     Route: 061

REACTIONS (2)
  - Rib fracture [Unknown]
  - Fall [Recovered/Resolved]
